FAERS Safety Report 8015828-9 (Version None)
Quarter: 2011Q4

REPORT INFORMATION
  Report Type: 
  Country: None (occurrence: None)
  Receive Date: 20111230
  Receipt Date: 20111227
  Transmission Date: 20120403
  Serious: No
  Sender: FDA-Public Use
  Company Number: FR-ROCHE-1026204

PATIENT
  Age: 3 Year
  Sex: Male

DRUGS (2)
  1. TAMIFLU [Suspect]
     Indication: ANTIVIRAL PROPHYLAXIS
     Route: 048
  2. CELESTONE [Concomitant]

REACTIONS (2)
  - NO ADVERSE EVENT [None]
  - EXPIRED DRUG ADMINISTERED [None]
